FAERS Safety Report 13905008 (Version 3)
Quarter: 2020Q3

REPORT INFORMATION
  Report Type: Other
  Country: US (occurrence: US)
  Receive Date: 20170825
  Receipt Date: 20200804
  Transmission Date: 20201102
  Serious: Yes (Hospitalization, Other)
  Sender: FDA-Public Use
  Company Number: US-ROCHE-1983073

PATIENT
  Age: 54 Year
  Sex: Male
  Weight: 97.61 kg

DRUGS (10)
  1. AMPYRA [Suspect]
     Active Substance: DALFAMPRIDINE
     Indication: MULTIPLE SCLEROSIS
     Route: 048
     Dates: start: 20151203
  2. KLONOPIN [Suspect]
     Active Substance: CLONAZEPAM
     Indication: RESTLESSNESS
  3. OCREVUS [Suspect]
     Active Substance: OCRELIZUMAB
     Indication: MULTIPLE SCLEROSIS
     Route: 042
     Dates: start: 20170517
  4. DOCUSATE SODIUM. [Concomitant]
     Active Substance: DOCUSATE SODIUM
     Dates: start: 2018
  5. CRANBERRY FRUIT [Concomitant]
     Indication: URINARY TRACT INFECTION
     Route: 048
     Dates: start: 2017
  6. ARGINAID [Concomitant]
     Route: 048
     Dates: start: 202001
  7. OCREVUS [Suspect]
     Active Substance: OCRELIZUMAB
     Dosage: NEXT DATES OF ADMINISTRATION: 31/OCT/2018, 01/MAY/2019
     Route: 042
     Dates: start: 20170531, end: 20191017
  8. KLONOPIN [Suspect]
     Active Substance: CLONAZEPAM
     Indication: ANXIETY
     Route: 048
     Dates: start: 2018
  9. MELATONIN [Concomitant]
     Active Substance: MELATONIN
     Route: 048
     Dates: start: 2018
  10. NAPROSYN [Concomitant]
     Active Substance: NAPROXEN
     Route: 048
     Dates: start: 2018

REACTIONS (5)
  - Cellulitis [Recovered/Resolved]
  - Ulcer [Recovering/Resolving]
  - Urinary tract infection [Recovered/Resolved]
  - Pyrexia [Unknown]
  - Sepsis [Recovered/Resolved]

NARRATIVE: CASE EVENT DATE: 20170727
